FAERS Safety Report 10262999 (Version 2)
Quarter: 2014Q2

REPORT INFORMATION
  Report Type: Report from Study
  Country: US (occurrence: US)
  Receive Date: 20140626
  Receipt Date: 20140626
  Transmission Date: 20141212
  Serious: Yes (Death)
  Sender: FDA-Public Use
  Company Number: US-MYLANLABS-2013S1025742

PATIENT
  Age: 81 Year
  Sex: Male

DRUGS (10)
  1. CLOZAPINE TABLETS [Suspect]
  2. ATROPINE [Concomitant]
     Route: 060
  3. ROXANOL [Concomitant]
  4. POTASSIUM [Concomitant]
  5. LORAZEPAM [Concomitant]
  6. TRANSDERM SCOP [Concomitant]
  7. ACETAMINOPHEN [Concomitant]
     Route: 054
  8. PREDNISONE [Concomitant]
  9. DUONEB [Concomitant]
  10. PULMICORT [Concomitant]
     Dosage: NEBS

REACTIONS (1)
  - Death [Fatal]
